FAERS Safety Report 23328946 (Version 1)
Quarter: 2023Q4

REPORT INFORMATION
  Report Type: Report from Study
  Country: EC (occurrence: EC)
  Receive Date: 20231222
  Receipt Date: 20231222
  Transmission Date: 20240110
  Serious: Yes (Hospitalization, Other)
  Sender: FDA-Public Use
  Company Number: EC-Merck Healthcare KGaA-9310193

PATIENT
  Age: 10 Year
  Sex: Male

DRUGS (1)
  1. SAIZEN [Suspect]
     Active Substance: SOMATROPIN
     Indication: Growth hormone deficiency
     Route: 058
     Dates: start: 20211014, end: 202202

REACTIONS (4)
  - Seizure [Recovered/Resolved]
  - Intracranial pressure increased [Recovering/Resolving]
  - Ascites [Recovering/Resolving]
  - Device occlusion [Unknown]

NARRATIVE: CASE EVENT DATE: 20220201
